FAERS Safety Report 9284384 (Version 2)
Quarter: 2013Q2

REPORT INFORMATION
  Report Type: Spontaneous
  Country: US (occurrence: US)
  Receive Date: 20130510
  Receipt Date: 20130530
  Transmission Date: 20140414
  Serious: Yes (Hospitalization, Other)
  Sender: FDA-Public Use
  Company Number: US-B.I. PHARMACEUTICALS,INC./RIDGEFIELD-2013-BI-12259BP

PATIENT
  Age: 62 Year
  Sex: Female

DRUGS (10)
  1. PRADAXA [Suspect]
     Indication: CEREBROVASCULAR ACCIDENT PROPHYLAXIS
     Dosage: 300 MG
     Route: 048
     Dates: start: 2012, end: 20130507
  2. PRADAXA [Suspect]
     Indication: ATRIAL FIBRILLATION
  3. OMEPRAZOLE [Concomitant]
  4. HYZAAR [Concomitant]
     Indication: HYPERTENSION
  5. CRESTOR [Concomitant]
     Indication: DYSLIPIDAEMIA
  6. SLEEPING PILL [Concomitant]
  7. TOPROL [Concomitant]
     Indication: HYPERTENSION
  8. LASIX [Concomitant]
  9. POTASSIUM [Concomitant]
  10. CELEXA [Concomitant]
     Indication: DEPRESSION

REACTIONS (3)
  - Atrial thrombosis [Not Recovered/Not Resolved]
  - Catheterisation cardiac [Unknown]
  - Mitral valve incompetence [Unknown]
